FAERS Safety Report 5537858-9 (Version None)
Quarter: 2007Q4

REPORT INFORMATION
  Report Type: 
  Country: None (occurrence: None)
  Receive Date: 20071207
  Receipt Date: 20071126
  Transmission Date: 20080405
  Serious: Yes (Other)
  Sender: FDA-Public Use
  Company Number: JP-PFIZER INC-2007084265

PATIENT
  Sex: Male

DRUGS (4)
  1. GABAPEN [Suspect]
     Route: 048
  2. TEGRETOL [Concomitant]
     Route: 048
  3. DEPAKENE [Concomitant]
     Route: 048
  4. CLOBAZAM [Concomitant]
     Route: 048

REACTIONS (2)
  - CONVULSION [None]
  - SOMNOLENCE [None]
